FAERS Safety Report 13282421 (Version 1)
Quarter: 2017Q1

REPORT INFORMATION
  Report Type: Spontaneous
  Country: US (occurrence: US)
  Receive Date: 20170301
  Receipt Date: 20170301
  Transmission Date: 20170428
  Serious: Yes (Other)
  Sender: FDA-Public Use
  Company Number: US-TEVA-744767USA

PATIENT
  Sex: Female

DRUGS (4)
  1. NUVIGIL [Suspect]
     Active Substance: ARMODAFINIL
     Route: 065
  2. PROVIGIL [Interacting]
     Active Substance: MODAFINIL
     Route: 065
  3. ZOLPIDEM [Interacting]
     Active Substance: ZOLPIDEM\ZOLPIDEM TARTRATE
     Route: 065
  4. ESTRADIOL W/NORGESTIMATE [Interacting]
     Active Substance: ESTRADIOL\NORGESTIMATE
     Route: 065

REACTIONS (2)
  - Exposure during pregnancy [Unknown]
  - Drug interaction [Unknown]
